FAERS Safety Report 7748479-1 (Version None)
Quarter: 2011Q3

REPORT INFORMATION
  Report Type: 
  Country: None (occurrence: None)
  Receive Date: 20110914
  Receipt Date: 20110906
  Transmission Date: 20111222
  Serious: Yes (Other)
  Sender: FDA-Public Use
  Company Number: US-BIOGENIDEC-2011BI034079

PATIENT
  Sex: Female

DRUGS (3)
  1. AVONEX [Suspect]
     Indication: MULTIPLE SCLEROSIS
     Route: 030
     Dates: start: 19980801, end: 20041220
  2. AVONEX [Suspect]
     Route: 030
     Dates: start: 20061128
  3. AVONEX [Suspect]
     Route: 030

REACTIONS (5)
  - ASTHMA [None]
  - SENSATION OF HEAVINESS [None]
  - ATRIAL THROMBOSIS [None]
  - FATIGUE [None]
  - DEPRESSED MOOD [None]
